FAERS Safety Report 5233876-9 (Version None)
Quarter: 2007Q1

REPORT INFORMATION
  Report Type: 
  Country: None (occurrence: None)
  Receive Date: 20070208
  Receipt Date: 20070207
  Transmission Date: 20070707
  Serious: Yes (Death, Hospitalization)
  Sender: FDA-Public Use
  Company Number: HQWYE304323JAN07

PATIENT
  Sex: Male

DRUGS (6)
  1. CORDARONE [Suspect]
     Indication: ATRIAL FIBRILLATION
     Dosage: DAILY DOSE BETWEEN 200 AND 600 MG
     Route: 048
     Dates: start: 20060322, end: 20060815
  2. INSULIN [Concomitant]
     Dosage: DOSE UNKNOWN
     Route: 058
  3. SIMVASTATIN [Concomitant]
     Route: 065
  4. MARCUMAR [Concomitant]
     Dosage: DOSE UNKNOWN
     Route: 048
  5. BLOPRESS [Concomitant]
     Route: 065
  6. ISOPTIN [Concomitant]
     Dosage: 240 MG, FREQUENCY UNSPECIFIED
     Route: 065

REACTIONS (4)
  - CARDIAC FAILURE ACUTE [None]
  - LIVER DISORDER [None]
  - PNEUMONIA PRIMARY ATYPICAL [None]
  - PULMONARY FIBROSIS [None]
